FAERS Safety Report 10224790 (Version 1)
Quarter: 2014Q2

REPORT INFORMATION
  Report Type: Spontaneous
  Country: US (occurrence: US)
  Receive Date: 20140609
  Receipt Date: 20140609
  Transmission Date: 20141212
  Serious: Yes (Other)
  Sender: FDA-Public Use
  Company Number: US-MERCK-1406USA003643

PATIENT
  Age: 44 Year
  Sex: Male

DRUGS (2)
  1. JANUVIA [Suspect]
     Indication: DIABETES MELLITUS
     Dosage: 100 MG, ONCE DAILY
     Route: 048
     Dates: start: 201205, end: 2014
  2. JANUVIA [Suspect]
     Dosage: 100 MG, ONCE DAILY
     Route: 048
     Dates: start: 2011, end: 201205

REACTIONS (1)
  - Pancreatitis [Recovering/Resolving]
